FAERS Safety Report 15406103 (Version 1)
Quarter: 2018Q3

REPORT INFORMATION
  Report Type: Spontaneous
  Country: JP (occurrence: JP)
  Receive Date: 20180920
  Receipt Date: 20180920
  Transmission Date: 20181010
  Serious: Yes (Hospitalization)
  Sender: FDA-Public Use
  Company Number: JP-ROCHE-2183914

PATIENT
  Age: 43 Year
  Sex: Male
  Weight: 47 kg

DRUGS (5)
  1. TALION (JAPAN) [Concomitant]
     Active Substance: BEPOTASTINE
     Indication: PREMEDICATION
     Route: 048
     Dates: start: 20170123, end: 20170123
  2. RITUXAN [Suspect]
     Active Substance: RITUXIMAB
     Indication: TRANSPLANT REJECTION
     Route: 041
     Dates: start: 20170123, end: 20170123
  3. BRUFEN [Concomitant]
     Active Substance: IBUPROFEN
     Indication: PREMEDICATION
     Route: 048
     Dates: start: 20170123, end: 20170123
  4. TACROLIMUS HYDRATE [Concomitant]
     Active Substance: TACROLIMUS
     Indication: TRANSPLANT REJECTION
  5. HUMAN NORMAL IMMUNOGLOBULIN [Concomitant]
     Active Substance: HUMAN IMMUNOGLOBULIN G
     Indication: TRANSPLANT REJECTION
     Route: 041
     Dates: start: 20161228

REACTIONS (9)
  - Cholecystitis [Recovered/Resolved]
  - Hyperphosphatasaemia [Recovered/Resolved]
  - Pneumonia [Recovered/Resolved]
  - Blood lactate dehydrogenase increased [Recovered/Resolved]
  - Abdominal pain upper [Recovered/Resolved]
  - C-reactive protein increased [Recovered/Resolved]
  - Alanine aminotransferase increased [Recovered/Resolved]
  - Aspartate aminotransferase increased [Recovered/Resolved]
  - Off label use [Unknown]

NARRATIVE: CASE EVENT DATE: 20170327
